FAERS Safety Report 19474567 (Version 3)
Quarter: 2022Q1

REPORT INFORMATION
  Report Type: Other
  Country: CA (occurrence: CA)
  Receive Date: 20210630
  Receipt Date: 20220118
  Transmission Date: 20220424
  Serious: Yes (Hospitalization, Other)
  Sender: FDA-Public Use
  Company Number: CA-CELLTRION INC.-2021CA008603

PATIENT

DRUGS (4)
  1. RITUXIMAB [Suspect]
     Active Substance: RITUXIMAB
     Indication: Obstructive pancreatitis
     Dosage: UNK
     Route: 042
  2. RITUXIMAB [Suspect]
     Active Substance: RITUXIMAB
     Indication: Immunoglobulin G4 related disease
     Dosage: 1000.0 MILLIGRAM
     Route: 042
  3. MYCOPHENOLIC ACID [Suspect]
     Active Substance: MYCOPHENOLIC ACID
     Indication: Product used for unknown indication
     Dosage: 720.0 MILLIGRAM, 2 EVERY 1 DAYS
     Route: 065
  4. RISEDRONATE SODIUM [Suspect]
     Active Substance: RISEDRONATE SODIUM
     Indication: Product used for unknown indication
     Route: 065

REACTIONS (10)
  - Blood bilirubin increased [Unknown]
  - Gastritis [Unknown]
  - Hepatic encephalopathy [Unknown]
  - Immunoglobulin G4 related disease [Unknown]
  - Obstructive pancreatitis [Unknown]
  - Soft tissue disorder [Unknown]
  - Diarrhoea [Unknown]
  - Nausea [Unknown]
  - Product use in unapproved indication [Unknown]
  - Off label use [Unknown]
